FAERS Safety Report 10559553 (Version 1)
Quarter: 2014Q4

REPORT INFORMATION
  Report Type: Spontaneous
  Country: GB (occurrence: None)
  Receive Date: 20141030
  Receipt Date: 20141030
  Transmission Date: 20150529
  Serious: Yes (Other)
  Sender: FDA-Public Use
  Company Number: IMP_07979_2014

PATIENT
  Age: 33 Year
  Sex: Female

DRUGS (1)
  1. DOXYCYCLINE. [Suspect]
     Active Substance: DOXYCYCLINE
     Indication: ACNE
     Dosage: STAT.

REACTIONS (9)
  - Nausea [None]
  - Disinhibition [None]
  - Mood swings [None]
  - Depressed mood [None]
  - Headache [None]
  - Irritability [None]
  - Suicidal ideation [None]
  - Self injurious behaviour [None]
  - Anxiety [None]
